FAERS Safety Report 9597498 (Version 1)
Quarter: 2013Q4

REPORT INFORMATION
  Report Type: Spontaneous
  Country: US (occurrence: US)
  Receive Date: 20131004
  Receipt Date: 20131004
  Transmission Date: 20140711
  Serious: No
  Sender: FDA-Public Use
  Company Number: US-AMGEN-USASP2013019642

PATIENT
  Age: 46 Year
  Sex: Female
  Weight: 122 kg

DRUGS (12)
  1. ENBREL [Suspect]
     Indication: RHEUMATOID ARTHRITIS
     Dosage: 50 MG, QWK
     Route: 058
     Dates: start: 201205, end: 201301
  2. SINGULAIR [Concomitant]
     Dosage: 10 MG, UNK
  3. TOPAMAX [Concomitant]
     Dosage: 25 MG, UNK
  4. METHOTREXATE [Concomitant]
     Dosage: 2.5 MG, UNK
  5. SYNTHROID [Concomitant]
     Dosage: 200 MUG, UNK
  6. METFORMIN [Concomitant]
     Dosage: 850 MG, UNK
  7. LISINOPRIL [Concomitant]
     Dosage: 30 MG, UNK
  8. OMEPRAZOLE [Concomitant]
     Dosage: 20 MG, UNK
  9. FOLIC ACID [Concomitant]
     Dosage: 1 MG, UNK
  10. VITAMIN D                          /00107901/ [Concomitant]
     Dosage: 1000 UNIT, UNK
  11. CALCIUM [Concomitant]
     Dosage: UNK
  12. ANTARA [Concomitant]
     Dosage: 130 MG, UNK

REACTIONS (1)
  - Headache [Unknown]
